FAERS Safety Report 19572826 (Version 2)
Quarter: 2021Q3

REPORT INFORMATION
  Report Type: Report from Study
  Country: US (occurrence: US)
  Receive Date: 20210716
  Receipt Date: 20210816
  Transmission Date: 20211014
  Serious: Yes (Hospitalization)
  Sender: FDA-Public Use
  Company Number: US-B.I. PHARMACEUTICALS,INC./RIDGEFIELD-2021-BI-104858

PATIENT
  Sex: Female

DRUGS (1)
  1. OFEV [Suspect]
     Active Substance: NINTEDANIB
     Indication: INTERSTITIAL LUNG DISEASE
     Dosage: 100 MG BID
     Route: 048
     Dates: start: 20210420, end: 20210626

REACTIONS (3)
  - Rectal haemorrhage [Recovered/Resolved]
  - Haemorrhage [Recovering/Resolving]
  - Nausea [Unknown]
